FAERS Safety Report 4834813-9 (Version None)
Quarter: 2005Q4

REPORT INFORMATION
  Report Type: 
  Country: None (occurrence: None)
  Receive Date: 20051114
  Receipt Date: 20051103
  Transmission Date: 20060501
  Serious: Yes (Other)
  Sender: FDA-Public Use
  Company Number: 2005151441

PATIENT
  Sex: Female
  Weight: 71.6683 kg

DRUGS (2)
  1. ACCUPRIL [Suspect]
     Indication: HYPERTENSION
     Dosage: 20 MG (20 MG, 1 IN 1 D)
     Dates: start: 19990101
  2. TOPROL (METOPROLOL) [Suspect]
     Indication: BLOOD PRESSURE

REACTIONS (9)
  - CATARACT [None]
  - CONDITION AGGRAVATED [None]
  - DYSPNOEA [None]
  - FLATULENCE [None]
  - HYPERTENSION [None]
  - MYOCARDIAL INFARCTION [None]
  - OCULAR VASCULAR DISORDER [None]
  - OEDEMA PERIPHERAL [None]
  - VISION BLURRED [None]
